FAERS Safety Report 5418249-8 (Version None)
Quarter: 2007Q3

REPORT INFORMATION
  Report Type: 
  Country: None (occurrence: None)
  Receive Date: 20070817
  Receipt Date: 20070814
  Transmission Date: 20080115
  Serious: Yes (Other)
  Sender: FDA-Public Use
  Company Number: A0670189A

PATIENT
  Age: 64 Year
  Sex: Female

DRUGS (9)
  1. ADVAIR DISKUS 100/50 [Suspect]
     Indication: ASTHMA
     Route: 055
     Dates: start: 20000101
  2. EVISTA [Concomitant]
  3. PRAVASTATIN [Concomitant]
  4. NEXIUM [Concomitant]
  5. IMITREX [Concomitant]
  6. NASONEX SPRAY [Concomitant]
  7. FEXOFENADINE [Concomitant]
  8. ALBUTEROL [Concomitant]
  9. CALCIUM CHLORIDE [Concomitant]

REACTIONS (5)
  - ASTHMA [None]
  - DRUG INEFFECTIVE [None]
  - PAINFUL RESPIRATION [None]
  - PHARMACEUTICAL PRODUCT COMPLAINT [None]
  - SUFFOCATION FEELING [None]
